FAERS Safety Report 9412001 (Version 2)
Quarter: 2013Q3

REPORT INFORMATION
  Report Type: Spontaneous
  Country: US (occurrence: None)
  Receive Date: 20130424
  Receipt Date: 20130729
  Transmission Date: 20140515
  Serious: Yes (Hospitalization)
  Sender: FDA-Public Use
  Company Number: SYM-2013-02938

PATIENT
  Age: 49 Year
  Sex: Female

DRUGS (2)
  1. WELLBUTRIN SR [Suspect]
     Indication: BIPOLAR DISORDER
     Dosage: 100MG, 2 IN 1 D, ORAL
     Route: 048
  2. LAMOTRIGINE (LAMOTRIGINE) (LAMOTRIGINE) [Concomitant]

REACTIONS (3)
  - Drug effect decreased [None]
  - Crying [None]
  - Depression [None]
